FAERS Safety Report 13732443 (Version 2)
Quarter: 2017Q4

REPORT INFORMATION
  Report Type: Spontaneous
  Country: US (occurrence: US)
  Receive Date: 20170707
  Receipt Date: 20171010
  Transmission Date: 20180320
  Serious: No
  Sender: FDA-Public Use
  Company Number: US-SA-2017SA113143

PATIENT
  Age: 55 Year
  Sex: Male
  Weight: 88.45 kg

DRUGS (10)
  1. DUPIXENT [Suspect]
     Active Substance: DUPILUMAB
     Indication: ECZEMA
     Route: 058
     Dates: start: 20170526, end: 20170526
  2. DUPIXENT [Suspect]
     Active Substance: DUPILUMAB
     Indication: PRURITUS
     Route: 058
     Dates: start: 20170526, end: 20170526
  3. DUPIXENT [Suspect]
     Active Substance: DUPILUMAB
     Indication: RASH
     Route: 058
     Dates: start: 20170526, end: 20170526
  4. LOSARTAN. [Concomitant]
     Active Substance: LOSARTAN
     Indication: BLOOD PRESSURE MEASUREMENT
     Route: 065
  5. DOXEPIN [Concomitant]
     Active Substance: DOXEPIN
     Route: 065
  6. DUPIXENT [Suspect]
     Active Substance: DUPILUMAB
     Indication: DERMATITIS ATOPIC
     Route: 058
     Dates: start: 2017
  7. DUPIXENT [Suspect]
     Active Substance: DUPILUMAB
     Indication: ECZEMA
     Route: 058
     Dates: start: 2017
  8. DUPIXENT [Suspect]
     Active Substance: DUPILUMAB
     Indication: PRURITUS
     Route: 058
     Dates: start: 2017
  9. DUPIXENT [Suspect]
     Active Substance: DUPILUMAB
     Indication: RASH
     Route: 058
     Dates: start: 2017
  10. DUPIXENT [Suspect]
     Active Substance: DUPILUMAB
     Indication: DERMATITIS ATOPIC
     Route: 058
     Dates: start: 20170526, end: 20170526

REACTIONS (1)
  - Ocular hyperaemia [Recovered/Resolved]

NARRATIVE: CASE EVENT DATE: 2017
